FAERS Safety Report 4312203-5 (Version None)
Quarter: 2004Q1

REPORT INFORMATION
  Report Type: 
  Country: None (occurrence: None)
  Receive Date: 20040303
  Receipt Date: 20040223
  Transmission Date: 20041129
  Serious: Yes (Death)
  Sender: FDA-Public Use
  Company Number: USA-2004-0013320

PATIENT
  Age: 30 Year
  Sex: Female
  Weight: 60.8 kg

DRUGS (5)
  1. OXYCODONE HCL [Suspect]
  2. TRAMADOL HCL [Suspect]
  3. DIPHENHYDRAMINE HCL [Suspect]
  4. NICOTINE [Suspect]
  5. CAFFEINE (CAFFEINE) [Suspect]

REACTIONS (7)
  - COMPLETED SUICIDE [None]
  - GUN SHOT WOUND [None]
  - IMPRISONMENT [None]
  - MARITAL PROBLEM [None]
  - PNEUMONITIS [None]
  - SKULL FRACTURE [None]
  - TRAUMATIC BRAIN INJURY [None]
